FAERS Safety Report 11847520 (Version 1)
Quarter: 2015Q4

REPORT INFORMATION
  Report Type: Spontaneous
  Country: JP (occurrence: JP)
  Receive Date: 20151217
  Receipt Date: 20151217
  Transmission Date: 20160305
  Serious: Yes (Death, Other)
  Sender: FDA-Public Use
  Company Number: PHJP1900JP000443

PATIENT
  Age: 68 Year
  Sex: Female

DRUGS (10)
  1. PROHEPARUM [Concomitant]
     Active Substance: CHOLINE BITARTRATE\CYSTEINE\INOSITOL\MAMMAL LIVER
     Indication: PRODUCT USED FOR UNKNOWN INDICATION
     Dosage: 6 TABLETS
     Route: 048
     Dates: end: 19770326
  2. GURONSAN [Concomitant]
     Indication: PRODUCT USED FOR UNKNOWN INDICATION
     Dosage: 2 G, QD
     Route: 048
     Dates: end: 19770326
  3. VOLTAREN [Suspect]
     Active Substance: DICLOFENAC SODIUM
     Indication: SPINAL OSTEOARTHRITIS
     Dosage: 75 MG, QD
     Route: 048
     Dates: end: 19770317
  4. PERSANTIN [Concomitant]
     Active Substance: DIPYRIDAMOLE
     Indication: PRODUCT USED FOR UNKNOWN INDICATION
     Dosage: 3 TABLETS
     Route: 048
     Dates: end: 19770326
  5. MARZULENE S [Concomitant]
     Active Substance: GLUTAMINE\SODIUM GUALENATE
     Indication: PRODUCT USED FOR UNKNOWN INDICATION
     Dosage: 1 G, QD
     Route: 048
     Dates: end: 19770326
  6. DEXAMETHASONE. [Concomitant]
     Active Substance: DEXAMETHASONE
     Route: 048
     Dates: start: 19770215, end: 19770215
  7. GLUTATHIONE [Concomitant]
     Active Substance: GLUTATHIONE
     Indication: PRODUCT USED FOR UNKNOWN INDICATION
     Dosage: 200 MG, QD
     Route: 065
     Dates: end: 19770327
  8. TIOCTAN [Concomitant]
     Indication: PRODUCT USED FOR UNKNOWN INDICATION
     Dosage: 5 ML, QD
     Route: 065
     Dates: end: 19770327
  9. DEXAMETHASONE. [Concomitant]
     Active Substance: DEXAMETHASONE
     Indication: PRODUCT USED FOR UNKNOWN INDICATION
     Dosage: UNK
     Route: 048
     Dates: end: 19770326
  10. DIGITOXIN [Concomitant]
     Active Substance: DIGITOXIN
     Indication: CARDIAC FAILURE
     Dosage: UNK
     Route: 048
     Dates: end: 19770326

REACTIONS (14)
  - Hepatic hypertrophy [Unknown]
  - Decreased appetite [Unknown]
  - Diarrhoea [Unknown]
  - Vomiting [Unknown]
  - Hepatitis acute [Fatal]
  - Renal failure [Fatal]
  - Jaundice [Unknown]
  - Blood pressure decreased [Unknown]
  - Abdominal pain upper [Unknown]
  - Hepatic function abnormal [Unknown]
  - Acute hepatic failure [Fatal]
  - Rheumatoid arthritis [Unknown]
  - Gastritis [Unknown]
  - Coma [Unknown]
